FAERS Safety Report 5333555-3 (Version None)
Quarter: 2007Q2

REPORT INFORMATION
  Report Type: 
  Country: None (occurrence: None)
  Receive Date: 20070521
  Receipt Date: 20070511
  Transmission Date: 20071010
  Serious: Yes (Hospitalization)
  Sender: FDA-Public Use
  Company Number: 163-20785-07050692

PATIENT
  Age: 51 Year
  Sex: Male

DRUGS (25)
  1. THALOMID [Suspect]
     Indication: MULTIPLE MYELOMA
     Dosage: 200 MG, DAYS 4-7, ORAL
     Route: 048
     Dates: start: 20060311, end: 20060314
  2. DEXAMETHASONE TAB [Suspect]
     Indication: MULTIPLE MYELOMA
     Dosage: 40 MG, DAYS 4-7
     Dates: start: 20060311, end: 20060314
  3. VELCADE [Suspect]
     Indication: MULTIPLE MYELOMA
     Dosage: 1 MG/M2, DAYS 1, 4, 8, 11, INTRAVENOUS
     Route: 042
     Dates: start: 20060311, end: 20060318
  4. CISPLATIN [Suspect]
     Indication: MULTIPLE MYELOMA
     Dosage: 10 MG/M2, DAYS 4-7, INTRAVENOUS
     Route: 042
     Dates: start: 20060311, end: 20060314
  5. ADRIAMYCIN PFS [Suspect]
     Indication: MULTIPLE MYELOMA
     Dosage: 10 MG/M2, DAYS 4-7, INTRAVENOUS
     Route: 042
     Dates: start: 20060311, end: 20060314
  6. CYCLOPHOSPHAMIDE [Suspect]
     Indication: MULTIPLE MYELOMA
     Dosage: 400 MG/M2, DAYS 4-7, INTRAVENOUS
     Route: 042
     Dates: start: 20060311, end: 20060314
  7. ETOPOSIDE [Suspect]
     Indication: MULTIPLE MYELOMA
     Dosage: 40 MG/M2, DAYS 4-7, INTRAVENOUS
     Route: 042
     Dates: start: 20060311, end: 20060314
  8. ACYCLOVIR (ACICLOVIR) (TABLETS) [Concomitant]
  9. MULTIVITAMINS (MULTIVITAMINS) (TABLETS) [Concomitant]
  10. LORAZEPAM [Concomitant]
  11. COLACE (DOCUSATE SODIUM) [Concomitant]
  12. PROCRIT [Concomitant]
  13. PEPCID [Concomitant]
  14. G-CSF (GRANULOCYTE COLONY STIMULATING FACTOR) [Concomitant]
  15. LEVOFLOXACIN [Concomitant]
  16. FLUCONAZOLE [Concomitant]
  17. FAMOTIDINE [Concomitant]
  18. ENOXAPARIN SODIUM [Concomitant]
  19. PANTOPRAZOLE SODIUM [Concomitant]
  20. DOCUSATE (DOCUSATE) [Concomitant]
  21. MAGNESIUM SULFATE [Concomitant]
  22. PROPOXYPHENE (DEXTROPROPOXYPHENE) [Concomitant]
  23. GRANISETRON  HCL [Concomitant]
  24. LACTULOSE [Concomitant]
  25. PERU BALSAM WITH HYDROCORTISONE (PERUVIAN BALSAM) (CREAM) [Concomitant]

REACTIONS (11)
  - ANAEMIA [None]
  - C-REACTIVE PROTEIN INCREASED [None]
  - CONSTIPATION [None]
  - HAEMOPTYSIS [None]
  - HYPOTENSION [None]
  - MUCOSAL INFLAMMATION [None]
  - NAUSEA [None]
  - PLATELET COUNT DECREASED [None]
  - PYREXIA [None]
  - VOMITING [None]
  - WHITE BLOOD CELL COUNT DECREASED [None]
